FAERS Safety Report 5090843-6 (Version None)
Quarter: 2006Q3

REPORT INFORMATION
  Report Type: 
  Country: None (occurrence: None)
  Receive Date: 20060823
  Receipt Date: 20060608
  Transmission Date: 20061208
  Serious: Yes (Other)
  Sender: FDA-Public Use
  Company Number: B0427446A

PATIENT
  Sex: Male

DRUGS (5)
  1. MELPHALAN (FORMULATION UNKNOWN) (MELPHALAN) [Suspect]
     Indication: STEM CELL TRANSPLANT
     Dosage: 150 MG/M2
  2. FLUDARABINE PHOSPHATE [Suspect]
     Indication: STEM CELL TRANSPLANT
     Dosage: 30 MG/M2  / PER DAY INTRAVENOUS
     Route: 042
  3. CANCER CHEMOTHERAPY [Concomitant]
  4. CYCLOSPORINE [Concomitant]
  5. ANTITHYMOCYTE IG [Concomitant]

REACTIONS (7)
  - ACUTE GRAFT VERSUS HOST DISEASE IN INTESTINE [None]
  - ACUTE GRAFT VERSUS HOST DISEASE IN SKIN [None]
  - BRONCHOPULMONARY ASPERGILLOSIS [None]
  - DISEASE RECURRENCE [None]
  - FEBRILE NEUTROPENIA [None]
  - INFECTION [None]
  - MUCOSAL INFLAMMATION [None]
